FAERS Safety Report 22399039 (Version 2)
Quarter: 2023Q2

REPORT INFORMATION
  Report Type: Spontaneous
  Country: US (occurrence: US)
  Receive Date: 20230602
  Receipt Date: 20230607
  Transmission Date: 20230722
  Serious: No
  Sender: FDA-Public Use
  Company Number: US-AMGEN-USASP2023089688

PATIENT
  Age: 65 Year
  Sex: Male
  Weight: 80.4 kg

DRUGS (2)
  1. NEULASTA [Suspect]
     Active Substance: PEGFILGRASTIM
     Indication: Prophylaxis
     Dosage: 6 MILLIGRAM
     Route: 065
     Dates: start: 20230426
  2. NEULASTA [Suspect]
     Active Substance: PEGFILGRASTIM
     Indication: Lung neoplasm malignant
     Dosage: 6 MILLIGRAM
     Route: 065

REACTIONS (2)
  - Unintentional medical device removal [Recovered/Resolved]
  - Device adhesion issue [Unknown]

NARRATIVE: CASE EVENT DATE: 20230520
